FAERS Safety Report 9396423 (Version 1)
Quarter: 2013Q3

REPORT INFORMATION
  Report Type: Spontaneous
  Country: US (occurrence: US)
  Receive Date: 20130711
  Receipt Date: 20130711
  Transmission Date: 20140515
  Serious: Yes (Other)
  Sender: FDA-Public Use
  Company Number: US-WATSON-2013-12025

PATIENT
  Age: 22 Year
  Sex: Female

DRUGS (1)
  1. NEXT CHOICE (WATSON LABORATORIES) [Suspect]
     Indication: PRODUCT USED FOR UNKNOWN INDICATION
     Dosage: TOOK BOTH TABLETS AT ONCE PER PLANNED PARENTHOOD INDICATION, UNKNOWN
     Route: 048

REACTIONS (3)
  - Abortion spontaneous [Unknown]
  - Pregnancy [Not Recovered/Not Resolved]
  - Exposure during pregnancy [None]
